FAERS Safety Report 5713856-7 (Version None)
Quarter: 2008Q2

REPORT INFORMATION
  Report Type: 
  Country: None (occurrence: None)
  Receive Date: 20080421
  Receipt Date: 20080409
  Transmission Date: 20081010
  Serious: Yes (Other)
  Sender: FDA-Public Use
  Company Number: WAES 0804USA02675

PATIENT
  Age: 78 Year
  Sex: Female

DRUGS (7)
  1. ZETIA [Suspect]
     Indication: HYPERCHOLESTEROLAEMIA
     Dosage: 10 MG/DAILY PO
     Route: 048
     Dates: start: 20071024, end: 20080102
  2. TRICOR [Suspect]
     Indication: HYPERLIPIDAEMIA
     Dosage: 134 MG/DAILY PO
     Route: 048
     Dates: start: 20071024, end: 20080116
  3. ACARBOSE [Concomitant]
  4. AZELNIDIPINE [Concomitant]
  5. NATEGLINIDE [Concomitant]
  6. OLMESARTAN MEDOXOMIL [Concomitant]
  7. URSODIOL [Concomitant]

REACTIONS (4)
  - ALANINE AMINOTRANSFERASE INCREASED [None]
  - ASPARTATE AMINOTRANSFERASE INCREASED [None]
  - GAMMA-GLUTAMYLTRANSFERASE INCREASED [None]
  - HEPATIC FUNCTION ABNORMAL [None]
